FAERS Safety Report 8103287-7 (Version None)
Quarter: 2012Q1

REPORT INFORMATION
  Report Type: 
  Country: None (occurrence: None)
  Receive Date: 20120201
  Receipt Date: 20120124
  Transmission Date: 20120608
  Serious: Yes (Hospitalization)
  Sender: FDA-Public Use
  Company Number: US-BAYER-2011-105673

PATIENT
  Age: 23 Year
  Sex: Female
  Weight: 70.295 kg

DRUGS (5)
  1. BUPROPION HYDROCHLORIDE [Concomitant]
     Dosage: 75 MG, UNK
  2. WELLBUTRIN [Concomitant]
     Dosage: 75 MG, BID
  3. AZITHROMYCIN [Concomitant]
     Dosage: 250 MG, UNK
  4. YAZ [Suspect]
     Indication: CONTRACEPTION
     Dosage: UNK
     Dates: start: 20060901, end: 20080101
  5. BUPROPION HYDROCHLORIDE [Concomitant]
     Dosage: 150 MG TABLET

REACTIONS (6)
  - CHOLECYSTITIS [None]
  - PROCEDURAL PAIN [None]
  - ABDOMINAL PAIN [None]
  - EMOTIONAL DISTRESS [None]
  - GALLBLADDER DISORDER [None]
  - DYSPEPSIA [None]
